FAERS Safety Report 5151369-4 (Version None)
Quarter: 2006Q4

REPORT INFORMATION
  Report Type: 
  Country: None (occurrence: None)
  Receive Date: 20061114
  Receipt Date: 20061114
  Transmission Date: 20070319
  Serious: Yes (Other)
  Sender: FDA-Public Use
  Company Number: None

PATIENT
  Age: 42 Year
  Sex: Female
  Weight: 72.5755 kg

DRUGS (1)
  1. ACETAMINOPHEN [Suspect]
     Indication: ANALGESIC EFFECT
     Dosage: 2 CAPLETS AS NEEDED PO
     Route: 048
     Dates: start: 20061107, end: 20061111

REACTIONS (1)
  - ABDOMINAL DISCOMFORT [None]
